FAERS Safety Report 9649888 (Version 2)
Quarter: 2013Q4

REPORT INFORMATION
  Report Type: Not Available
  Country: US (occurrence: US)
  Receive Date: 20131028
  Receipt Date: 20131028
  Transmission Date: 20140711
  Serious: Yes (Death, Hospitalization, Other)
  Sender: FDA-Public Use
  Company Number: US-ONYX-2013-1241

PATIENT
  Age: 78 Year
  Sex: Male

DRUGS (8)
  1. KYPROLIS [Suspect]
     Indication: PLASMA CELL MYELOMA
     Route: 042
     Dates: start: 20130701
  2. KYPROLIS [Suspect]
     Dates: end: 20130911
  3. DECADRON [Concomitant]
     Indication: PRODUCT USED FOR UNKNOWN INDICATION
  4. FLOMAX [Concomitant]
     Indication: PROSTATOMEGALY
  5. STEROID [Concomitant]
     Indication: PRODUCT USED FOR UNKNOWN INDICATION
  6. LASIX [Concomitant]
     Indication: FLUID RETENTION
  7. VANCOMYCIN [Concomitant]
     Indication: CLOSTRIDIUM DIFFICILE INFECTION
  8. COUMADIN [Concomitant]
     Indication: THROMBOSIS

REACTIONS (17)
  - Disease progression [Fatal]
  - Dehydration [Not Recovered/Not Resolved]
  - Blood sodium decreased [Not Recovered/Not Resolved]
  - Delirium [Unknown]
  - Ammonia increased [Unknown]
  - Hernia [Unknown]
  - Fatigue [Unknown]
  - Nausea [Unknown]
  - Vomiting [Unknown]
  - Myopathy [Recovering/Resolving]
  - Diarrhoea [Not Recovered/Not Resolved]
  - Pain in jaw [Unknown]
  - Pyrexia [Unknown]
  - Vomiting [Unknown]
  - Pyrexia [Unknown]
  - Blood cortisol increased [Unknown]
  - Blood calcium decreased [Unknown]
